FAERS Safety Report 14542775 (Version 1)
Quarter: 2018Q1

REPORT INFORMATION
  Report Type: Spontaneous
  Country: BR (occurrence: BR)
  Receive Date: 20180216
  Receipt Date: 20180216
  Transmission Date: 20180509
  Serious: Yes (Other)
  Sender: FDA-Public Use
  Company Number: BR-OTSUKA-DJ201308462

PATIENT
  Age: 44 Year
  Sex: Female
  Weight: 95 kg

DRUGS (2)
  1. ABILIFY [Suspect]
     Active Substance: ARIPIPRAZOLE
     Indication: DEPRESSION
     Dosage: 10 MG, UNK
     Route: 048
     Dates: start: 20131024, end: 20131024
  2. EUTHYROX [Concomitant]
     Active Substance: LEVOTHYROXINE SODIUM
     Indication: HYPOTHYROIDISM
     Route: 048

REACTIONS (8)
  - Throat tightness [Recovering/Resolving]
  - Headache [Recovering/Resolving]
  - Vomiting [Recovering/Resolving]
  - Dyspepsia [Recovering/Resolving]
  - Swelling face [Recovering/Resolving]
  - Wrong technique in product usage process [Unknown]
  - Nausea [Recovering/Resolving]
  - Hangover [Recovering/Resolving]

NARRATIVE: CASE EVENT DATE: 20131024
